FAERS Safety Report 23020450 (Version 1)
Quarter: 2023Q4

REPORT INFORMATION
  Report Type: Other
  Country: None (occurrence: CA)
  Receive Date: 20231003
  Receipt Date: 20231003
  Transmission Date: 20240110
  Serious: Yes (Hospitalization, Other)
  Sender: FDA-Public Use
  Company Number: CA-Marksans Pharma Limited-2146582

PATIENT
  Age: 24 Year
  Sex: Female

DRUGS (3)
  1. GABAPENTIN [Suspect]
     Active Substance: GABAPENTIN
     Indication: Neuromyelitis optica spectrum disorder
     Route: 065
  2. AZATHIOPRINE [Suspect]
     Active Substance: AZATHIOPRINE
     Route: 065
  3. AMITRIPTYLINE [Suspect]
     Active Substance: AMITRIPTYLINE
     Route: 065

REACTIONS (6)
  - Disease recurrence [Recovered/Resolved]
  - Caesarean section [Unknown]
  - Condition aggravated [Recovered/Resolved]
  - Haemorrhage in pregnancy [Unknown]
  - Off label use [Unknown]
  - Placenta praevia [Unknown]
